FAERS Safety Report 4292341-6 (Version None)
Quarter: 2004Q1

REPORT INFORMATION
  Report Type: 
  Country: None (occurrence: None)
  Receive Date: 20040211
  Receipt Date: 20040202
  Transmission Date: 20041129
  Serious: Yes (Hospitalization)
  Sender: FDA-Public Use
  Company Number: US-BRISTOL-MYERS SQUIBB COMPANY-12493086

PATIENT
  Age: 13 Year
  Sex: Female

DRUGS (2)
  1. CARBOPLATIN [Suspect]
     Indication: EWING'S SARCOMA RECURRENT
     Dates: start: 20020101
  2. ETOPOSIDE [Suspect]
     Indication: EWING'S SARCOMA RECURRENT
     Dosage: ON DAYS -6, -5, -4
     Dates: start: 20020101

REACTIONS (3)
  - HAEMODIALYSIS [None]
  - RENAL ATROPHY [None]
  - RENAL FAILURE [None]
